FAERS Safety Report 5399086-X (Version None)
Quarter: 2007Q3

REPORT INFORMATION
  Report Type: 
  Country: None (occurrence: None)
  Receive Date: 20070727
  Receipt Date: 20060814
  Transmission Date: 20080115
  Serious: No
  Sender: FDA-Public Use
  Company Number: A0616550A

PATIENT
  Age: 89 Year
  Sex: Female

DRUGS (4)
  1. LOTRONEX [Suspect]
     Indication: IRRITABLE BOWEL SYNDROME
     Dosage: .5MG TWICE PER DAY
     Route: 048
     Dates: start: 20060801
  2. THYROID TAB [Concomitant]
  3. LOPRESSOR [Concomitant]
  4. LOTREL [Concomitant]

REACTIONS (1)
  - DRUG INEFFECTIVE [None]
